FAERS Safety Report 15360566 (Version 1)
Quarter: 2018Q3

REPORT INFORMATION
  Report Type: Spontaneous
  Country: US (occurrence: US)
  Receive Date: 20180907
  Receipt Date: 20180907
  Transmission Date: 20181010
  Serious: Yes (Other)
  Sender: FDA-Public Use
  Company Number: US-SUN PHARMACEUTICAL INDUSTRIES LTD-2018US-183714

PATIENT
  Sex: Male

DRUGS (1)
  1. MEMANTINE. [Suspect]
     Active Substance: MEMANTINE
     Indication: PRODUCT USED FOR UNKNOWN INDICATION
     Dosage: UNK
     Route: 065

REACTIONS (6)
  - Seizure [Recovering/Resolving]
  - Confusional state [Recovering/Resolving]
  - Rhinorrhoea [Unknown]
  - Nasopharyngitis [Unknown]
  - Agitation [Recovering/Resolving]
  - Formication [Recovering/Resolving]

NARRATIVE: CASE EVENT DATE: 20180824
